FAERS Safety Report 5647332-7 (Version None)
Quarter: 2008Q1

REPORT INFORMATION
  Report Type: 
  Country: None (occurrence: None)
  Receive Date: 20080303
  Receipt Date: 20080225
  Transmission Date: 20080703
  Serious: Yes (Other)
  Sender: FDA-Public Use
  Company Number: GB-ABBOTT-08P-167-0439892-00

PATIENT
  Age: 29 Year
  Sex: Female
  Weight: 80 kg

DRUGS (1)
  1. SIBUTRAMINE HYDROCHLORIDE MONOHYDRATE [Suspect]
     Indication: WEIGHT CONTROL
     Dates: start: 20071126, end: 20080131

REACTIONS (2)
  - HAEMOGLOBIN DECREASED [None]
  - PANCYTOPENIA [None]
